FAERS Safety Report 26193125 (Version 1)
Quarter: 2025Q4

REPORT INFORMATION
  Report Type: Spontaneous
  Country: US (occurrence: US)
  Receive Date: 20251223
  Receipt Date: 20251223
  Transmission Date: 20260118
  Serious: No
  Sender: CIPLA
  Company Number: US-CIPLA LTD.-2025US15960

PATIENT

DRUGS (1)
  1. LENALIDOMIDE [Suspect]
     Active Substance: LENALIDOMIDE
     Indication: Plasma cell myeloma
     Dosage: 15 MILLIGRAM, 21 DAYS ON, 7 DAYS OFF
     Route: 048
     Dates: start: 20251004, end: 20251118

REACTIONS (1)
  - Rash [Unknown]

NARRATIVE: CASE EVENT DATE: 20251118
